FAERS Safety Report 4560105-1 (Version None)
Quarter: 2005Q1

REPORT INFORMATION
  Report Type: 
  Country: None (occurrence: None)
  Receive Date: 20050119
  Receipt Date: 20050107
  Transmission Date: 20050727
  Serious: Yes (Hospitalization)
  Sender: FDA-Public Use
  Company Number: 001-0981-997572

PATIENT
  Age: 69 Year
  Sex: Male
  Weight: 93.6678 kg

DRUGS (13)
  1. ATORVASTATIN (ATORVASTATIN) [Suspect]
     Indication: HYPERLIPIDAEMIA
     Dosage: 10 MG DAILY, ORAL
     Route: 048
     Dates: start: 19990405, end: 19990607
  2. ATORVASTATIN (ATORVASTATIN) [Suspect]
     Indication: HYPERLIPIDAEMIA
     Dosage: 10 MG DAILY, ORAL
     Route: 048
     Dates: start: 19990608, end: 19991003
  3. LOSARTAN POTASSIUM [Concomitant]
  4. INDOMETHACIN [Concomitant]
  5. DEXAMETHASONE [Concomitant]
  6. OMEPRAZOLE [Concomitant]
  7. ASPIRIN [Concomitant]
  8. CETIRIZINE HCL [Concomitant]
  9. ASCORBIC ACID [Concomitant]
  10. TOCOPHEROL (TOCOPHEROL) [Concomitant]
  11. IBUPROFEN [Concomitant]
  12. CYCLOBENZAPRINE HYDROCHLORIDE [Concomitant]
  13. OXAPROZIN [Concomitant]

REACTIONS (10)
  - BILIARY CIRRHOSIS [None]
  - CHOLECYSTITIS [None]
  - CHRONIC OBSTRUCTIVE PULMONARY DISEASE [None]
  - FUNGAL INFECTION [None]
  - GRANULOMATOUS LIVER DISEASE [None]
  - HEPATIC FUNCTION ABNORMAL [None]
  - INFLUENZA LIKE ILLNESS [None]
  - LUNG DISORDER [None]
  - MYCOBACTERIAL INFECTION [None]
  - SARCOIDOSIS [None]
